FAERS Safety Report 5973054-9 (Version None)
Quarter: 2008Q4

REPORT INFORMATION
  Report Type: 
  Country: None (occurrence: None)
  Receive Date: 20081201
  Receipt Date: 20081120
  Transmission Date: 20090506
  Serious: Yes (Hospitalization)
  Sender: FDA-Public Use
  Company Number: AT-TEVA-181228ISR

PATIENT
  Age: 58 Year
  Sex: Male
  Weight: 83 kg

DRUGS (10)
  1. CITALOPRAM HYDROBROMIDE [Suspect]
     Dates: start: 20080814
  2. ERGENYL CHRONO [Suspect]
  3. VENLAFAXINE HYDROCHLORIDE [Suspect]
     Dates: start: 20080822
  4. QUETIAPINE FUMARATE [Suspect]
     Dates: start: 20080817
  5. QUETIAPINE FUMARATE [Suspect]
     Dates: start: 20080813, end: 20080814
  6. QUETIAPINE FUMARATE [Suspect]
     Dates: start: 20080815, end: 20080815
  7. QUETIAPINE FUMARATE [Suspect]
     Dates: start: 20080816, end: 20080816
  8. LORAZEPAM [Suspect]
     Dates: start: 20080814
  9. LORAZEPAM [Suspect]
     Dates: start: 20080813, end: 20080813
  10. PENTOXIFYLLINE [Suspect]

REACTIONS (1)
  - HYPONATRAEMIA [None]
